FAERS Safety Report 15944924 (Version 1)
Quarter: 2019Q1

REPORT INFORMATION
  Report Type: Spontaneous
  Country: CN (occurrence: CN)
  Receive Date: 20190211
  Receipt Date: 20190211
  Transmission Date: 20190417
  Serious: Yes (Other)
  Sender: FDA-Public Use
  Company Number: CN-PFIZER INC-2019045044

PATIENT
  Age: 86 Year
  Sex: Male

DRUGS (3)
  1. LI QUAN [Concomitant]
     Indication: OEDEMA
     Dosage: 10 MG, 1X/DAY
     Route: 041
     Dates: start: 20181121, end: 20181206
  2. TYGACIL [Suspect]
     Active Substance: TIGECYCLINE
     Indication: PNEUMONIA
     Dosage: 50 MG, 2X/DAY
     Route: 041
     Dates: start: 20181120, end: 20181206
  3. PROMETHAZINE HCL [Concomitant]
     Active Substance: PROMETHAZINE HYDROCHLORIDE
     Indication: PROPHYLAXIS
     Dosage: 12.5 MG, 1X/DAY
     Route: 030
     Dates: start: 20181119, end: 20181206

REACTIONS (1)
  - Full blood count decreased [Not Recovered/Not Resolved]

NARRATIVE: CASE EVENT DATE: 20181126
